FAERS Safety Report 26067474 (Version 1)
Quarter: 2025Q4

REPORT INFORMATION
  Report Type: Spontaneous
  Country: US (occurrence: US)
  Receive Date: 20251120
  Receipt Date: 20251120
  Transmission Date: 20260119
  Serious: No
  Sender: BRISTOL-MYERS SQUIBB COMPANY
  Company Number: US-BRISTOL-MYERS SQUIBB COMPANY-2025-157024

PATIENT
  Sex: Male

DRUGS (3)
  1. COBENFY [Suspect]
     Active Substance: TROSPIUM CHLORIDE\XANOMELINE
     Indication: Schizophrenia
     Dosage: STRENGTH: 125MG/30MG?DOSE: 125MG/30MG
     Route: 048
  2. HALDOL [Concomitant]
     Active Substance: HALOPERIDOL
     Indication: Product used for unknown indication
  3. HALDOL [Concomitant]
     Active Substance: HALOPERIDOL

REACTIONS (1)
  - Insomnia [Recovering/Resolving]
